FAERS Safety Report 9263304 (Version 2)
Quarter: 2013Q2

REPORT INFORMATION
  Report Type: Spontaneous
  Country: US (occurrence: US)
  Receive Date: 20130429
  Receipt Date: 20130514
  Transmission Date: 20140414
  Serious: Yes (Other)
  Sender: FDA-Public Use
  Company Number: US-RB-052876-13

PATIENT
  Sex: 0

DRUGS (5)
  1. SUBUTEX [Suspect]
     Route: 064
  2. SUBUTEX [Suspect]
     Indication: DRUG DEPENDENCE
     Route: 063
  3. PAXIL [Suspect]
     Indication: PRODUCT USED FOR UNKNOWN INDICATION
     Dosage: DOSAGE DETAILS UNKNOWN
     Route: 064
     Dates: end: 2012
  4. ZOLOFT [Suspect]
     Dosage: DOSAGE DETAILS UNKNOWN
     Route: 064
     Dates: start: 2012
  5. ZOLOFT [Suspect]
     Indication: PRODUCT USED FOR UNKNOWN INDICATION
     Dosage: DOSAGE DETAILS UNKNOWN
     Route: 063

REACTIONS (3)
  - Foetal exposure during pregnancy [Recovered/Resolved]
  - Drug withdrawal syndrome neonatal [Unknown]
  - Exposure during breast feeding [Not Recovered/Not Resolved]
